FAERS Safety Report 7991245-2 (Version None)
Quarter: 2011Q4

REPORT INFORMATION
  Report Type: 
  Country: None (occurrence: None)
  Receive Date: 20111219
  Receipt Date: 20111206
  Transmission Date: 20120403
  Serious: Yes (Other)
  Sender: FDA-Public Use
  Company Number: FR-GLAXOSMITHKLINE-B0767274A

PATIENT
  Sex: Female

DRUGS (5)
  1. ZOVIRAX [Suspect]
     Indication: HERPES VIRUS INFECTION
     Dosage: 15MGK THREE TIMES PER DAY
     Route: 042
     Dates: start: 20110818, end: 20110908
  2. ROCEPHIN [Concomitant]
     Indication: INFECTION
     Route: 042
     Dates: start: 20110818, end: 20110822
  3. LEXOMIL [Concomitant]
     Dosage: 6MG PER DAY
     Route: 048
  4. AMOXICILLIN [Concomitant]
     Indication: INFECTION
     Route: 042
     Dates: start: 20110818, end: 20110822
  5. PRAVASTATIN [Concomitant]
     Dosage: 40MG PER DAY
     Route: 048

REACTIONS (2)
  - TUBULOINTERSTITIAL NEPHRITIS [None]
  - RENAL FAILURE ACUTE [None]
